FAERS Safety Report 15992131 (Version 2)
Quarter: 2019Q1

REPORT INFORMATION
  Report Type: Spontaneous
  Country: SK (occurrence: SK)
  Receive Date: 20190221
  Receipt Date: 20190301
  Transmission Date: 20190418
  Serious: Yes (Other)
  Sender: FDA-Public Use
  Company Number: SK-PFIZER INC-2019074880

PATIENT
  Age: 70 Year
  Sex: Male

DRUGS (9)
  1. ATORVASTATIN CALCIUM. [Suspect]
     Active Substance: ATORVASTATIN CALCIUM
     Dosage: UNK
  2. PANTOMYL [Suspect]
     Active Substance: PANTOPRAZOLE SODIUM
     Dosage: UNK
  3. OLICARD [Suspect]
     Active Substance: ISOSORBIDE MONONITRATE
     Dosage: UNK
  4. ENELBIN (NAFTIDROFURYL OXALATE) [Suspect]
     Active Substance: NAFRONYL OXALATE
     Dosage: UNK
  5. GOPTEN [Suspect]
     Active Substance: TRANDOLAPRIL
     Dosage: UNK
  6. FURON (FUROSEMIDE) [Suspect]
     Active Substance: FUROSEMIDE
     Dosage: UNK
  7. CARVEDILOL. [Suspect]
     Active Substance: CARVEDILOL
     Dosage: UNK
  8. AGEN [Suspect]
     Active Substance: AMLODIPINE BESYLATE
     Dosage: UNK
  9. ANOPYRIN [Suspect]
     Active Substance: ASPIRIN
     Dosage: UNK

REACTIONS (3)
  - Interstitial lung disease [Unknown]
  - Emphysema [Unknown]
  - Peripheral swelling [Unknown]
